FAERS Safety Report 21126314 (Version 1)
Quarter: 2022Q3

REPORT INFORMATION
  Report Type: Spontaneous
  Country: CN (occurrence: None)
  Receive Date: 20220725
  Receipt Date: 20220725
  Transmission Date: 20221027
  Serious: Yes (Hospitalization)
  Sender: FDA-Public Use
  Company Number: 2022A262277

PATIENT
  Age: 30584 Day
  Sex: Female
  Weight: 47 kg

DRUGS (5)
  1. DAPAGLIFLOZIN [Suspect]
     Active Substance: DAPAGLIFLOZIN
     Indication: Type 2 diabetes mellitus
     Route: 048
     Dates: start: 20220601, end: 20220625
  2. LINAGLIPTIN [Concomitant]
     Active Substance: LINAGLIPTIN
     Indication: Diabetes mellitus
     Route: 048
     Dates: start: 20220601, end: 20220625
  3. IRBESARTAN [Concomitant]
     Active Substance: IRBESARTAN
     Indication: Hypertension
     Route: 048
     Dates: start: 20220601, end: 20220625
  4. ASPIRIN [Concomitant]
     Active Substance: ASPIRIN
     Indication: Diabetes mellitus
     Route: 048
     Dates: start: 20220601, end: 20220625
  5. ATORVASTATIN CALCIUM [Concomitant]
     Active Substance: ATORVASTATIN CALCIUM
     Indication: Diabetes mellitus
     Route: 048
     Dates: start: 20220601, end: 20220625

REACTIONS (7)
  - Perineal cellulitis [Recovering/Resolving]
  - Enteritis infectious [Unknown]
  - Fournier^s gangrene [Unknown]
  - Perineal infection [Unknown]
  - Perineal ulceration [Unknown]
  - Depressed mood [Recovering/Resolving]
  - Chest discomfort [Unknown]

NARRATIVE: CASE EVENT DATE: 20220625
